FAERS Safety Report 17201491 (Version 1)
Quarter: 2020Q1

REPORT INFORMATION
  Report Type: Spontaneous
  Country: US (occurrence: US)
  Receive Date: 20191224
  Receipt Date: 20191224
  Transmission Date: 20200409
  Serious: Yes (Hospitalization)
  Sender: FDA-Public Use
  Company Number: None

PATIENT
  Age: 66 Year
  Sex: Female

DRUGS (10)
  1. CRESTOR [Concomitant]
     Active Substance: ROSUVASTATIN CALCIUM
  2. REVATIO [Concomitant]
     Active Substance: SILDENAFIL CITRATE
  3. METOPROLOL INJ 1MG/ML [Concomitant]
  4. ELIQUIS TAB 2.5MG [Concomitant]
  5. TADALAFIL. [Suspect]
     Active Substance: TADALAFIL
     Indication: PULMONARY ARTERIAL HYPERTENSION
     Route: 048
     Dates: start: 20181103
  6. UPTRAVI TAB 200MCG [Concomitant]
  7. SPIRONOLACT [Concomitant]
     Active Substance: SPIRONOLACTONE
  8. FUROSEMIDE INJ 10MG/ML [Concomitant]
  9. OMEPRAZOLE TAB 20MG [Concomitant]
  10. METHOTREXATE TAB 2.5MG [Concomitant]
     Active Substance: METHOTREXATE

REACTIONS (2)
  - Gallbladder disorder [None]
  - Therapy cessation [None]

NARRATIVE: CASE EVENT DATE: 20191130
